FAERS Safety Report 6413476-5 (Version None)
Quarter: 2009Q4

REPORT INFORMATION
  Report Type: 
  Country: None (occurrence: None)
  Receive Date: 20091020
  Receipt Date: 20091009
  Transmission Date: 20100525
  Serious: Yes (Hospitalization)
  Sender: FDA-Public Use
  Company Number: GXKR2009AZ11152

PATIENT
  Age: 28 Year
  Sex: Female

DRUGS (9)
  1. ENALAPRIL MALEATE [Suspect]
     Dosage: 12 MG, Q12H; 20 MG, Q12H
  2. PREDNISONE TAB [Concomitant]
  3. CYCLOPHOSPHAMIDE [Concomitant]
  4. ATENOLOL [Concomitant]
  5. AMLODIPINE [Concomitant]
  6. FUROSEMIDE [Concomitant]
  7. SIMVASTATIN [Concomitant]
  8. CALCIUM (CALCIUM) [Concomitant]
  9. IRON SUPPLEMENTS (NO INGREDIENTS/SUBSTANCES) [Concomitant]

REACTIONS (7)
  - ANGIOEDEMA [None]
  - BLOOD PRESSURE INADEQUATELY CONTROLLED [None]
  - BRAIN OEDEMA [None]
  - COMA [None]
  - GRAND MAL CONVULSION [None]
  - GRAVITATIONAL OEDEMA [None]
  - PROTEINURIA [None]
